FAERS Safety Report 7082508-6 (Version None)
Quarter: 2010Q4

REPORT INFORMATION
  Report Type: 
  Country: None (occurrence: None)
  Receive Date: 20101026
  Receipt Date: 20101012
  Transmission Date: 20110411
  Serious: Yes (Hospitalization, Other)
  Sender: FDA-Public Use
  Company Number: 724171

PATIENT
  Age: 62 Year
  Sex: Female

DRUGS (2)
  1. HEPARIN SODIUM [Suspect]
     Dosage: INTRAVENOUS DRIP
     Route: 041
  2. LOVENOX [Suspect]

REACTIONS (7)
  - BRAIN HERNIATION [None]
  - CEREBRAL HAEMORRHAGE [None]
  - EMBOLIC CEREBRAL INFARCTION [None]
  - HEPARIN-INDUCED THROMBOCYTOPENIA [None]
  - SUBARACHNOID HAEMORRHAGE [None]
  - UPPER MOTOR NEURONE LESION [None]
  - VASOSPASM [None]
